FAERS Safety Report 7803463-4 (Version None)
Quarter: 2011Q4

REPORT INFORMATION
  Report Type: 
  Country: None (occurrence: None)
  Receive Date: 20111007
  Receipt Date: 20111005
  Transmission Date: 20120403
  Serious: Yes (Hospitalization)
  Sender: FDA-Public Use
  Company Number: US-MERCK-1109USA00516

PATIENT
  Age: 63 Year
  Sex: Female

DRUGS (8)
  1. CALCIUM (UNSPECIFIED) AND VITAMIN D (UNSPECIFIED) [Concomitant]
     Route: 065
  2. FOSAMAX [Suspect]
     Indication: OSTEOPENIA
     Route: 048
     Dates: start: 19980401, end: 20070101
  3. CENTRUM SILVER [Concomitant]
     Route: 065
  4. FOSAMAX [Suspect]
     Route: 048
     Dates: start: 19980401, end: 20070101
  5. ASCORBIC ACID [Concomitant]
     Route: 065
  6. FOSAMAX PLUS D [Suspect]
     Indication: OSTEOPENIA
     Route: 048
     Dates: start: 20070201, end: 20081201
  7. FOSAMAX [Suspect]
     Route: 048
     Dates: start: 20080101, end: 20100201
  8. OMEPRAZOLE [Concomitant]
     Indication: GASTROOESOPHAGEAL REFLUX DISEASE
     Route: 065
     Dates: start: 20070101

REACTIONS (5)
  - GASTROOESOPHAGEAL REFLUX DISEASE [None]
  - WRIST FRACTURE [None]
  - FEMUR FRACTURE [None]
  - LIGAMENT SPRAIN [None]
  - TOOTH EXTRACTION [None]
